FAERS Safety Report 6299639-0 (Version None)
Quarter: 2009Q3

REPORT INFORMATION
  Report Type: 
  Country: None (occurrence: None)
  Receive Date: 20090806
  Receipt Date: 20090703
  Transmission Date: 20100115
  Serious: Yes (Other)
  Sender: FDA-Public Use
  Company Number: FR-SANOFI-SYNTHELABO-A02200901569

PATIENT
  Sex: Female
  Weight: 70 kg

DRUGS (7)
  1. MYTELASE [Suspect]
     Indication: MUSCULAR WEAKNESS
     Route: 048
     Dates: start: 19940101, end: 20090101
  2. MYTELASE [Suspect]
     Route: 048
     Dates: start: 20090616, end: 20090616
  3. MESTINON [Concomitant]
     Indication: DRUG USE FOR UNKNOWN INDICATION
     Dosage: UNKNOWN
     Route: 048
  4. DAFALGAN [Concomitant]
     Indication: DRUG USE FOR UNKNOWN INDICATION
     Dosage: 3 DF
     Route: 048
  5. CHONDROSULT [Concomitant]
     Indication: DRUG USE FOR UNKNOWN INDICATION
     Route: 048
  6. ATARAX [Concomitant]
     Indication: DRUG USE FOR UNKNOWN INDICATION
     Dosage: 2 DF
     Route: 048
  7. LANSOPRAZOLE [Concomitant]
     Indication: DRUG USE FOR UNKNOWN INDICATION
     Route: 048

REACTIONS (4)
  - DYSKINESIA [None]
  - DYSPHAGIA [None]
  - FATIGUE [None]
  - PRODUCT QUALITY ISSUE [None]
